FAERS Safety Report 4813230-1 (Version None)
Quarter: 2005Q4

REPORT INFORMATION
  Report Type: 
  Country: None (occurrence: None)
  Receive Date: 20051028
  Receipt Date: 20050412
  Transmission Date: 20060501
  Serious: No
  Sender: FDA-Public Use
  Company Number: US-GLAXOSMITHKLINE-A0554077A

PATIENT
  Age: 9 Year

DRUGS (3)
  1. ADVAIR DISKUS 100/50 [Suspect]
     Route: 055
  2. SINGULAIR [Suspect]
  3. ALBUTEROL [Concomitant]
     Route: 055

REACTIONS (1)
  - ASTHMA [None]
